FAERS Safety Report 4303826-8 (Version None)
Quarter: 2004Q1

REPORT INFORMATION
  Report Type: 
  Country: None (occurrence: None)
  Receive Date: 20040224
  Receipt Date: 20040224
  Transmission Date: 20041129
  Serious: Yes (Other)
  Sender: FDA-Public Use
  Company Number: None

PATIENT
  Sex: Male
  Weight: 78.0187 kg

DRUGS (7)
  1. VITAMIN B-12 [Suspect]
     Indication: ANAEMIA VITAMIN B12 DEFICIENCY
     Dosage: 5000MCG SUBLINGUAL
     Route: 060
  2. ZOCOR [Concomitant]
  3. ACCUPRIL [Concomitant]
  4. COREG [Concomitant]
  5. HYDROCHLOROTHIAZIDE [Concomitant]
  6. BUFFERIN [Concomitant]
  7. M.V.I. [Concomitant]

REACTIONS (1)
  - DENTAL CARIES [None]
